FAERS Safety Report 13898855 (Version 1)
Quarter: 2017Q3

REPORT INFORMATION
  Report Type: Spontaneous
  Country: US (occurrence: US)
  Receive Date: 20170824
  Receipt Date: 20170824
  Transmission Date: 20171127
  Serious: No
  Sender: FDA-Public Use
  Company Number: US-BAYER-2017-161458

PATIENT
  Age: 71 Year
  Sex: Female
  Weight: 175 kg

DRUGS (5)
  1. EUFLEX [Concomitant]
     Dosage: UNK
  2. ADVIL [Concomitant]
     Active Substance: IBUPROFEN
     Dosage: UNK
  3. HYDROXYCHLOROQUINE [Concomitant]
     Active Substance: HYDROXYCHLOROQUINE
     Dosage: UNK
  4. METHOTREXATE. [Concomitant]
     Active Substance: METHOTREXATE
     Dosage: UNK
  5. ALEVE [Suspect]
     Active Substance: NAPROXEN SODIUM
     Dosage: UNK
     Dates: start: 20170518

REACTIONS (3)
  - Peripheral swelling [Unknown]
  - Device ineffective [None]
  - Pain in extremity [Unknown]

NARRATIVE: CASE EVENT DATE: 20170518
